FAERS Safety Report 16818700 (Version 1)
Quarter: 2019Q3

REPORT INFORMATION
  Report Type: Spontaneous
  Country: US (occurrence: US)
  Receive Date: 20190917
  Receipt Date: 20190917
  Transmission Date: 20191005
  Serious: Yes (Other)
  Sender: FDA-Public Use
  Company Number: US-TEVA-2019-US-1108807

PATIENT
  Age: 66 Year
  Sex: Male

DRUGS (1)
  1. CETIRIZINE [Suspect]
     Active Substance: CETIRIZINE HYDROCHLORIDE
     Indication: ANGIOEDEMA
     Dosage: 10 MILLIGRAM DAILY;
     Route: 048

REACTIONS (1)
  - Therapy non-responder [Unknown]
